FAERS Safety Report 5295246-7 (Version None)
Quarter: 2007Q2

REPORT INFORMATION
  Report Type: 
  Country: None (occurrence: None)
  Receive Date: 20070412
  Receipt Date: 20070402
  Transmission Date: 20071010
  Serious: Yes (Other)
  Sender: FDA-Public Use
  Company Number: US-PFIZER INC-2007015053

PATIENT
  Sex: Female
  Weight: 80.7 kg

DRUGS (6)
  1. CELEBREX [Suspect]
     Indication: ARTHRALGIA
     Route: 048
     Dates: start: 20061129, end: 20061201
  2. CELEBREX [Suspect]
     Indication: ARTHRITIS
  3. EFFEXOR [Suspect]
     Indication: NIGHT SWEATS
     Dosage: DAILY DOSE:75MG
     Dates: start: 20061129, end: 20061220
  4. METFORMIN [Concomitant]
  5. STARLIX [Concomitant]
  6. LISINOPRIL [Concomitant]

REACTIONS (2)
  - HALLUCINATION [None]
  - RENAL FAILURE [None]
